FAERS Safety Report 4988042-9 (Version None)
Quarter: 2006Q2

REPORT INFORMATION
  Report Type: 
  Country: None (occurrence: None)
  Receive Date: 20060424
  Receipt Date: 20060412
  Transmission Date: 20061013
  Serious: Yes (Hospitalization)
  Sender: FDA-Public Use
  Company Number: 2006034408

PATIENT
  Age: 43 Year
  Sex: Male
  Weight: 69 kg

DRUGS (5)
  1. MINOXIDIL [Suspect]
     Indication: MALE PATTERN BALDNESS
     Dosage: 1 ML DOSE TWICE PER DAY, TOPICAL
     Route: 061
     Dates: start: 20051015, end: 20060304
  2. BLINDED THERAPY (BLINDED THERAPY) [Suspect]
     Indication: MALE PATTERN BALDNESS
     Dosage: 1 ML DOSE TWICE PER DAY, TOPICAL
     Route: 061
     Dates: start: 20051015, end: 20060304
  3. LOXOPROFEN SODIUM (LOXOPROFEN SODIUM) [Concomitant]
  4. TIZANIDINE HCL [Concomitant]
  5. REBAMIPIDE (REBAMIPIDE) [Concomitant]

REACTIONS (5)
  - BACK PAIN [None]
  - CORONARY ARTERY STENOSIS [None]
  - INSOMNIA [None]
  - MYOCARDIAL INFARCTION [None]
  - VENTRICULAR HYPERTROPHY [None]
